FAERS Safety Report 7371466-2 (Version None)
Quarter: 2011Q1

REPORT INFORMATION
  Report Type: 
  Country: None (occurrence: None)
  Receive Date: 20110324
  Receipt Date: 20110321
  Transmission Date: 20110831
  Serious: Yes (Hospitalization)
  Sender: FDA-Public Use
  Company Number: US-BRISTOL-MYERS SQUIBB COMPANY-15614985

PATIENT
  Age: 45 Year
  Sex: Male
  Weight: 55 kg

DRUGS (3)
  1. ERBITUX [Suspect]
     Indication: OESOPHAGEAL SQUAMOUS CELL CARCINOMA
     Dosage: LAST DOSE ON 07MAR11,400MG/M2 IV WEEK 1 THEN 250MG/M2 IV WEEK 2-6
     Route: 042
     Dates: start: 20110201
  2. CISPLATIN [Suspect]
     Indication: OESOPHAGEAL SQUAMOUS CELL CARCINOMA
     Dosage: 25MG/M2 WEEKLY X6,LAST DOSE ON 07MAR11
     Route: 042
     Dates: start: 20110201
  3. TAXOL [Suspect]
     Indication: OESOPHAGEAL SQUAMOUS CELL CARCINOMA
     Dosage: LAST DOSE ON 07MAR11,400MG/M2 WEEK 1 THEN 250MG/M2 WEEK 2-6
     Route: 042
     Dates: start: 20110201

REACTIONS (1)
  - OESOPHAGITIS [None]
